FAERS Safety Report 6683666-5 (Version None)
Quarter: 2010Q2

REPORT INFORMATION
  Report Type: 
  Country: None (occurrence: None)
  Receive Date: 20100416
  Receipt Date: 20100406
  Transmission Date: 20101027
  Serious: Yes (Hospitalization, Other)
  Sender: FDA-Public Use
  Company Number: US-BIOGENIDEC-2009BI038365

PATIENT
  Age: 58 Year
  Sex: Female

DRUGS (3)
  1. AVONEX [Suspect]
     Indication: MULTIPLE SCLEROSIS
     Route: 030
     Dates: start: 19980101, end: 20030101
  2. AVONEX [Suspect]
     Route: 030
     Dates: start: 20030101, end: 20090401
  3. AVONEX [Suspect]
     Route: 030
     Dates: start: 20091210

REACTIONS (8)
  - CARCINOID TUMOUR OF THE STOMACH [None]
  - DIARRHOEA [None]
  - EXTRANODAL MARGINAL ZONE B-CELL LYMPHOMA (MALT TYPE) [None]
  - GASTROINTESTINAL DISORDER [None]
  - MUSCULOSKELETAL PAIN [None]
  - NEPHROLITHIASIS [None]
  - PNEUMONIA [None]
  - SINUSITIS [None]
